FAERS Safety Report 15207285 (Version 1)
Quarter: 2018Q3

REPORT INFORMATION
  Report Type: Spontaneous
  Country: US (occurrence: US)
  Receive Date: 20180727
  Receipt Date: 20180727
  Transmission Date: 20181010
  Serious: Yes (Hospitalization)
  Sender: FDA-Public Use
  Company Number: US-ELI_LILLY_AND_COMPANY-US201807011587

PATIENT
  Age: 65 Year
  Sex: Male

DRUGS (1)
  1. RAMUCIRUMAB [Suspect]
     Active Substance: RAMUCIRUMAB
     Indication: GASTRIC CANCER STAGE II
     Dosage: UNK, CYCLICAL
     Route: 065

REACTIONS (4)
  - Dysphagia [Recovered/Resolved]
  - Weight decreased [Unknown]
  - Dysphonia [Recovered/Resolved]
  - Thyroiditis [Recovering/Resolving]
